FAERS Safety Report 23238452 (Version 1)
Quarter: 2023Q4

REPORT INFORMATION
  Report Type: Spontaneous
  Country: US (occurrence: US)
  Receive Date: 20231129
  Receipt Date: 20231129
  Transmission Date: 20240110
  Serious: Yes (Other)
  Sender: FDA-Public Use
  Company Number: US-ENDO-CASE-0046606

PATIENT

DRUGS (2)
  1. PERCOCET [Suspect]
     Active Substance: ACETAMINOPHEN\OXYCODONE HYDROCHLORIDE
  2. MORPHINE SULFATE [Suspect]
     Active Substance: MORPHINE SULFATE

REACTIONS (1)
  - Dyspnoea [Unknown]
